FAERS Safety Report 22389016 (Version 1)
Quarter: 2023Q2

REPORT INFORMATION
  Report Type: Spontaneous
  Country: IS (occurrence: IS)
  Receive Date: 20230531
  Receipt Date: 20230531
  Transmission Date: 20230722
  Serious: Yes (Life-Threatening, Hospitalization, Other)
  Sender: FDA-Public Use
  Company Number: IS-PFIZER INC-2004203808IS

PATIENT
  Age: 38 Year
  Sex: Male

DRUGS (4)
  1. CARDIZEM [Interacting]
     Active Substance: DILTIAZEM HYDROCHLORIDE
     Dosage: UNK
  2. ATENOLOL [Interacting]
     Active Substance: ATENOLOL
     Dosage: UNK
  3. SORBANGIL [Concomitant]
     Dosage: UNK
  4. NITROGLYCERIN [Concomitant]
     Active Substance: NITROGLYCERIN
     Dosage: UNK

REACTIONS (8)
  - Intentional overdose [Recovered/Resolved]
  - Myocardial infarction [Recovering/Resolving]
  - Pneumonia [Recovering/Resolving]
  - Cardiac arrest [Recovered/Resolved]
  - Bradycardia [Recovered/Resolved]
  - Drug interaction [Recovered/Resolved]
  - Hypotension [Recovered/Resolved]
  - Oliguria [Recovered/Resolved]
